FAERS Safety Report 5757902-3 (Version None)
Quarter: 2008Q2

REPORT INFORMATION
  Report Type: 
  Country: None (occurrence: None)
  Receive Date: 20080604
  Receipt Date: 20080529
  Transmission Date: 20081010
  Serious: Yes (Hospitalization)
  Sender: FDA-Public Use
  Company Number: GB-RANBAXY-2008RR-13671

PATIENT

DRUGS (3)
  1. SIMVASTATIN [Suspect]
     Dosage: 40 MG, QD
     Dates: start: 20080129, end: 20080220
  2. DIHYDROCODEINE [Concomitant]
  3. LANSOPRAZOLE [Concomitant]

REACTIONS (3)
  - CHOLELITHIASIS [None]
  - CHROMATURIA [None]
  - JAUNDICE [None]
